FAERS Safety Report 18881441 (Version 1)
Quarter: 2021Q1

REPORT INFORMATION
  Report Type: Spontaneous
  Country: US (occurrence: US)
  Receive Date: 20210212
  Receipt Date: 20210212
  Transmission Date: 20210420
  Serious: No
  Sender: FDA-Public Use
  Company Number: US-SA-2021SA039003

PATIENT
  Sex: Female

DRUGS (12)
  1. CALCIUM [Suspect]
     Active Substance: CALCIUM
     Dosage: 4MG
  2. BENADRYL DM [Concomitant]
     Active Substance: DEXTROMETHORPHAN HYDROBROMIDE\DIPHENHYDRAMINE HYDROCHLORIDE
     Dosage: 05MG
  3. FERROUS GLUCONATE [Concomitant]
     Active Substance: FERROUS GLUCONATE
     Dosage: 25MG
  4. DUPIXENT [Suspect]
     Active Substance: DUPILUMAB
     Indication: NASAL POLYPS
     Dosage: 300 MG, QOW
     Route: 058
  5. ZOFRAN [Suspect]
     Active Substance: ONDANSETRON HYDROCHLORIDE
     Dosage: 500MG
  6. LEVOTHYROXINE SODIUM. [Suspect]
     Active Substance: LEVOTHYROXINE SODIUM
     Dosage: 40MG
  7. CALCIUM/VITAMIN D [Suspect]
     Active Substance: CALCIUM\VITAMIN D
  8. IPRATROPIUM BROMIDE. [Concomitant]
     Active Substance: IPRATROPIUM BROMIDE
  9. PROTONIX [OMEPRAZOLE] [Suspect]
     Active Substance: OMEPRAZOLE
     Dosage: 10MG
  10. SINGULAIR [Suspect]
     Active Substance: MONTELUKAST SODIUM
     Dosage: 10MG
  11. ZYRTEC?D [Suspect]
     Active Substance: CETIRIZINE HYDROCHLORIDE\PSEUDOEPHEDRINE HYDROCHLORIDE
     Dosage: 40MG
  12. ATIVAN [Concomitant]
     Active Substance: LORAZEPAM
     Dosage: 4MG

REACTIONS (3)
  - Rash [Unknown]
  - Ocular discomfort [Unknown]
  - Oral herpes [Unknown]
